FAERS Safety Report 7938300-0 (Version None)
Quarter: 2011Q4

REPORT INFORMATION
  Report Type: 
  Country: None (occurrence: None)
  Receive Date: 20111123
  Receipt Date: 20111114
  Transmission Date: 20120403
  Serious: Yes (Hospitalization)
  Sender: FDA-Public Use
  Company Number: US-BAYER-2011-034997

PATIENT
  Age: 26 Year
  Sex: Female
  Weight: 54 kg

DRUGS (8)
  1. YAZ [Suspect]
     Indication: ACNE
     Dosage: UNK
     Route: 048
     Dates: start: 20061006, end: 20090410
  2. YASMIN [Suspect]
     Indication: ACNE
     Dosage: UNK
     Route: 048
     Dates: start: 20060614, end: 20061006
  3. YAZ [Suspect]
     Indication: ORAL CONTRACEPTION
  4. GABAPENTIN [Concomitant]
     Dosage: 100 MG, QD
     Dates: start: 20071101
  5. SINGULAIR [Concomitant]
     Route: 055
  6. YASMIN [Suspect]
     Indication: ORAL CONTRACEPTION
  7. FLONASE [Concomitant]
  8. PREDNISONE TAB [Concomitant]

REACTIONS (1)
  - PULMONARY EMBOLISM [None]
